FAERS Safety Report 9516243 (Version 1)
Quarter: 2013Q3

REPORT INFORMATION
  Report Type: Spontaneous
  Country: GB (occurrence: GB)
  Receive Date: 20130911
  Receipt Date: 20130911
  Transmission Date: 20140515
  Serious: Yes (Other)
  Sender: FDA-Public Use
  Company Number: PHHY2013GB096704

PATIENT
  Age: 21 Year
  Sex: Female

DRUGS (1)
  1. CLARITHROMYCIN [Suspect]
     Indication: RHINITIS
     Dates: start: 20130730, end: 20130801

REACTIONS (8)
  - Panic attack [Not Recovered/Not Resolved]
  - Balance disorder [Not Recovered/Not Resolved]
  - Abasia [Not Recovered/Not Resolved]
  - Ototoxicity [Not Recovered/Not Resolved]
  - Suicidal ideation [Not Recovered/Not Resolved]
  - Anxiety [Not Recovered/Not Resolved]
  - Vertigo [Not Recovered/Not Resolved]
  - Tinnitus [Not Recovered/Not Resolved]
